FAERS Safety Report 6557748-2 (Version None)
Quarter: 2010Q1

REPORT INFORMATION
  Report Type: 
  Country: None (occurrence: None)
  Receive Date: 20100125
  Receipt Date: 20100106
  Transmission Date: 20100710
  Serious: No
  Sender: FDA-Public Use
  Company Number: 2010-00016

PATIENT
  Age: 86 Year
  Sex: Male
  Weight: 72.5755 kg

DRUGS (3)
  1. COLD REMEDY ORAL MIST [Suspect]
     Dosage: QID - 5 DAYS
     Dates: start: 20091224, end: 20091229
  2. OMEPRAZOLE [Concomitant]
  3. ADVAIR DISKUS 100/50 [Concomitant]

REACTIONS (1)
  - AGEUSIA [None]
